FAERS Safety Report 13763485 (Version 4)
Quarter: 2017Q4

REPORT INFORMATION
  Report Type: Report from Study
  Country: CA (occurrence: CA)
  Receive Date: 20170718
  Receipt Date: 20171130
  Transmission Date: 20180320
  Serious: Yes (Other)
  Sender: FDA-Public Use
  Company Number: CA-GLAXOSMITHKLINE-CA2017GSK110044

PATIENT
  Sex: Male

DRUGS (1)
  1. SALBUTAMOL SULPHATE [Suspect]
     Active Substance: ALBUTEROL SULFATE
     Indication: PRODUCT USED FOR UNKNOWN INDICATION
     Dosage: UNK

REACTIONS (8)
  - Heart rate irregular [Unknown]
  - Nasal polypectomy [Unknown]
  - Pneumonitis [Unknown]
  - Pain [Unknown]
  - Prostate cancer [Unknown]
  - Cartilage injury [Unknown]
  - Sinusitis [Unknown]
  - Nasal polyps [Unknown]

NARRATIVE: CASE EVENT DATE: 2002
